FAERS Safety Report 5644091-9 (Version None)
Quarter: 2008Q1

REPORT INFORMATION
  Report Type: 
  Country: None (occurrence: None)
  Receive Date: 20080226
  Receipt Date: 20080215
  Transmission Date: 20080703
  Serious: Yes (Other)
  Sender: FDA-Public Use
  Company Number: B0508655A

PATIENT
  Age: 49 Year
  Sex: Male

DRUGS (6)
  1. PAXIL [Suspect]
     Indication: DEPRESSION
     Dosage: 20 MG/PER DAY/ORAL
     Route: 048
  2. ETHANOL (FORMULATION UNKNOWN) (ALCOHOL) [Suspect]
  3. ETHYL LOFLAZEPATE [Concomitant]
  4. SULPIRIDE [Concomitant]
  5. FLUNITRAZEPAM [Concomitant]
  6. DILTIAZEM HYDROCHLORIDE [Concomitant]

REACTIONS (3)
  - ANGINA PECTORIS [None]
  - DRUG INTERACTION [None]
  - MUSCULOSKELETAL STIFFNESS [None]
